FAERS Safety Report 21553591 (Version 3)
Quarter: 2023Q1

REPORT INFORMATION
  Report Type: Report from Study
  Country: US (occurrence: US)
  Receive Date: 20221104
  Receipt Date: 20230203
  Transmission Date: 20230418
  Serious: No
  Sender: FDA-Public Use
  Company Number: US-ABBVIE-22K-163-4509202-00

PATIENT
  Age: 61 Year
  Sex: Male

DRUGS (3)
  1. RINVOQ [Suspect]
     Active Substance: UPADACITINIB
     Indication: Psoriatic arthropathy
     Dosage: ONSET DATE OF TOOTH INFECTION SHOULD BE 2022
     Route: 048
     Dates: start: 20220614, end: 20221214
  2. COVID-19 VACCINE [Concomitant]
     Indication: COVID-19 immunisation
     Dosage: 1 IN ONCE
     Route: 030
  3. COVID-19 VACCINE [Concomitant]
     Indication: COVID-19 immunisation
     Dosage: BOOSTER DOSE, 1 IN ONCE
     Route: 030

REACTIONS (5)
  - Tooth infection [Not Recovered/Not Resolved]
  - Oral infection [Not Recovered/Not Resolved]
  - Oral mucosal erythema [Not Recovered/Not Resolved]
  - Psoriasis [Not Recovered/Not Resolved]
  - Respiratory syncytial virus infection [Recovering/Resolving]

NARRATIVE: CASE EVENT DATE: 20220801
